FAERS Safety Report 12474234 (Version 1)
Quarter: 2016Q2

REPORT INFORMATION
  Report Type: Report from Study
  Country: US (occurrence: US)
  Receive Date: 20160617
  Receipt Date: 20160617
  Transmission Date: 20160815
  Serious: Yes (Hospitalization)
  Sender: FDA-Public Use
  Company Number: US-BIOGEN-2016BI00251198

PATIENT
  Age: 45 Year
  Sex: Female

DRUGS (4)
  1. TYSABRI [Suspect]
     Active Substance: NATALIZUMAB
     Indication: MULTIPLE SCLEROSIS
     Route: 042
     Dates: start: 20160208, end: 20160321
  2. GINARIA (NOS) [Concomitant]
     Indication: PRODUCT USED FOR UNKNOWN INDICATION
     Route: 065
  3. LISINOPRIL. [Concomitant]
     Active Substance: LISINOPRIL
     Indication: HYPERTENSION
     Route: 065
  4. INSULIN [Concomitant]
     Active Substance: INSULIN NOS
     Indication: DIABETES MELLITUS
     Dosage: 10 TO 15 UNITS AS NEEDED BASED ON MEASURED BLOOD SUGAR LEVELS
     Route: 065

REACTIONS (7)
  - Blood urea abnormal [Unknown]
  - Hypotension [Recovered/Resolved]
  - Renal failure [Recovered/Resolved]
  - Vitamin D decreased [Unknown]
  - Cognitive disorder [Recovered/Resolved]
  - Dehydration [Recovered/Resolved]
  - Blood creatine abnormal [Unknown]

NARRATIVE: CASE EVENT DATE: 2016
